FAERS Safety Report 7400619-X (Version None)
Quarter: 2011Q2

REPORT INFORMATION
  Report Type: 
  Country: None (occurrence: None)
  Receive Date: 20110407
  Receipt Date: 20110401
  Transmission Date: 20111010
  Serious: No
  Sender: FDA-Public Use
  Company Number: US-PFIZER INC-2011072796

PATIENT
  Sex: Female
  Weight: 59.864 kg

DRUGS (9)
  1. GENOTROPIN [Suspect]
     Dosage: 0.4 MG, 1X/DAY
     Route: 058
  2. ENTOCORT EC [Concomitant]
     Dosage: 3 MG, 1X/DAY
  3. BETAXOLOL [Concomitant]
  4. ZINC [Concomitant]
     Dosage: 30 MG, UNK
  5. CO-Q-10 [Concomitant]
     Dosage: 100 MG, UNK
  6. VITAMIN B COMPLEX CAP [Concomitant]
  7. MILK THISTLE [Concomitant]
  8. MAGNESIUM GLUCEPTATE [Concomitant]
     Dosage: 200 MG, UNK
  9. VITAMIN D [Concomitant]

REACTIONS (5)
  - OEDEMA PERIPHERAL [None]
  - SWELLING FACE [None]
  - PRURITUS [None]
  - ARTHRALGIA [None]
  - INSOMNIA [None]
